FAERS Safety Report 6804401-3 (Version None)
Quarter: 2010Q2

REPORT INFORMATION
  Report Type: 
  Country: None (occurrence: None)
  Receive Date: 20100628
  Receipt Date: 20070512
  Transmission Date: 20101027
  Serious: No
  Sender: FDA-Public Use
  Company Number: US-PFIZER INC-2007010195

PATIENT
  Sex: Female
  Weight: 46.27 kg

DRUGS (4)
  1. XALATAN [Suspect]
     Indication: GLAUCOMA
     Route: 047
     Dates: start: 20020101
  2. COSOPT [Concomitant]
  3. LOTREL [Concomitant]
  4. TOPROL-XL [Concomitant]

REACTIONS (1)
  - BACK DISORDER [None]
